FAERS Safety Report 5238999-6 (Version None)
Quarter: 2007Q1

REPORT INFORMATION
  Report Type: 
  Country: None (occurrence: None)
  Receive Date: 20061208
  Receipt Date: 20050616
  Transmission Date: 20070707
  Serious: Yes (Other)
  Sender: FDA-Public Use
  Company Number: 2005UW09268

PATIENT
  Age: 63 Year
  Sex: Male
  Weight: 113.39 kg

DRUGS (10)
  1. CRESTOR [Suspect]
     Indication: BLOOD CHOLESTEROL INCREASED
     Dosage: 10 MG PO
     Route: 048
     Dates: start: 20041101, end: 20050301
  2. ALLOPURINOL [Concomitant]
  3. ASPIRIN [Concomitant]
  4. FUROSEMIDE [Concomitant]
  5. CELEBREX [Concomitant]
  6. ATENOLOL [Concomitant]
  7. DIOVAN [Concomitant]
  8. RANITIDINE [Concomitant]
  9. PLAVIX [Concomitant]
  10. PAXIL [Concomitant]

REACTIONS (5)
  - ABASIA [None]
  - ASTHENIA [None]
  - FALL [None]
  - GAIT DISTURBANCE [None]
  - MYALGIA [None]
